FAERS Safety Report 8541271-X (Version None)
Quarter: 2012Q3

REPORT INFORMATION
  Report Type: 
  Country: None (occurrence: None)
  Receive Date: 20120726
  Receipt Date: 20110923
  Transmission Date: 20120928
  Serious: No
  Sender: FDA-Public Use
  Company Number: US-ASTRAZENECA-2011SE57250

PATIENT
  Sex: Male

DRUGS (2)
  1. SEROQUEL [Suspect]
     Indication: AGGRESSION
     Route: 048
  2. DILANTIN [Concomitant]

REACTIONS (6)
  - OFF LABEL USE [None]
  - MENTAL DISORDER [None]
  - WRONG TECHNIQUE IN DRUG USAGE PROCESS [None]
  - SEXUALLY ACTIVE [None]
  - NIGHTMARE [None]
  - ADVERSE EVENT [None]
